FAERS Safety Report 6153651-0 (Version None)
Quarter: 2009Q2

REPORT INFORMATION
  Report Type: 
  Country: None (occurrence: None)
  Receive Date: 20090409
  Receipt Date: 20090316
  Transmission Date: 20091009
  Serious: Yes (Death, Other)
  Sender: FDA-Public Use
  Company Number: JPI-P-004322

PATIENT
  Age: 80 Year
  Sex: Male

DRUGS (2)
  1. LUVOX [Suspect]
     Indication: DEPRESSION
     Dosage: 75 MG (75 MG, 1 IN 1 D), ORAL
     Route: 048
     Dates: start: 20070512
  2. MIANSERIN [Suspect]
     Indication: DEPRESSION
     Dosage: 10 MG (10 MG, 1 IN 1 D), ORAL
     Route: 048
     Dates: start: 20070512

REACTIONS (6)
  - ACTIVATION SYNDROME [None]
  - AGITATION [None]
  - COMPLETED SUICIDE [None]
  - CONDITION AGGRAVATED [None]
  - DEPRESSION [None]
  - SELF ESTEEM DECREASED [None]
